FAERS Safety Report 16447390 (Version 1)
Quarter: 2019Q2

REPORT INFORMATION
  Report Type: Spontaneous
  Country: GB (occurrence: GB)
  Receive Date: 20190619
  Receipt Date: 20190619
  Transmission Date: 20190711
  Serious: Yes (Disabling)
  Sender: FDA-Public Use
  Company Number: GB-ACCORD-133321

PATIENT
  Age: 49 Year
  Sex: Female

DRUGS (2)
  1. QUETIAPINE/QUETIAPINE FUMARATE [Concomitant]
     Dosage: AT NIGHT.
  2. ARIPIPRAZOLE. [Suspect]
     Active Substance: ARIPIPRAZOLE
     Indication: SCHIZOPHRENIA

REACTIONS (4)
  - Communication disorder [Unknown]
  - Myalgia [Unknown]
  - Insomnia [Unknown]
  - Musculoskeletal stiffness [Unknown]
